FAERS Safety Report 18676601 (Version 1)
Quarter: 2020Q4

REPORT INFORMATION
  Report Type: Spontaneous
  Country: VE (occurrence: VE)
  Receive Date: 20201229
  Receipt Date: 20201229
  Transmission Date: 20210114
  Serious: Yes (Hospitalization, Other)
  Sender: FDA-Public Use
  Company Number: NVSC2020VE241179

PATIENT
  Age: 40 Year
  Sex: Female

DRUGS (1)
  1. GLIVEC [Suspect]
     Active Substance: IMATINIB MESYLATE
     Indication: CHRONIC MYELOID LEUKAEMIA
     Dosage: 400 MG (4 X 100MG)
     Route: 065

REACTIONS (6)
  - Vaginal haemorrhage [Unknown]
  - Anal haemorrhage [Unknown]
  - Epistaxis [Unknown]
  - Thrombosis [Unknown]
  - Haemorrhage [Unknown]
  - Diarrhoea [Unknown]
